FAERS Safety Report 11872139 (Version 2)
Quarter: 2016Q1

REPORT INFORMATION
  Report Type: Spontaneous
  Country: US (occurrence: US)
  Receive Date: 20151228
  Receipt Date: 20160202
  Transmission Date: 20160526
  Serious: Yes (Other)
  Sender: FDA-Public Use
  Company Number: US-PFIZER INC-2015463084

PATIENT
  Age: 87 Year
  Sex: Female

DRUGS (5)
  1. VITAMIN D /00107901/ [Concomitant]
     Active Substance: ERGOCALCIFEROL
     Dosage: UNK UNK, WEEKLY (ONCE A WEEK FOR 6 WEEKS)
  2. ULTRACET [Concomitant]
     Active Substance: ACETAMINOPHEN\TRAMADOL HYDROCHLORIDE
     Indication: PAIN
     Dosage: 2 DF, AS NEEDED (325 MG-37.5 MG TABLET, 2 EACH EVERY 6 HOURS AS NEEDED )
  3. XANAX [Concomitant]
     Active Substance: ALPRAZOLAM
     Dosage: 0.25 MG, 1X/DAY
     Dates: start: 20150313, end: 20151216
  4. LYRICA [Suspect]
     Active Substance: PREGABALIN
     Indication: NEUROPATHY PERIPHERAL
     Dosage: 150 MG, 3X/DAY
     Route: 048
     Dates: start: 200801
  5. NORVASC [Concomitant]
     Active Substance: AMLODIPINE BESYLATE
     Dosage: 5 MG, 1X/DAY

REACTIONS (10)
  - Migraine [Unknown]
  - Cerebrovascular accident [Unknown]
  - Hypercholesterolaemia [Unknown]
  - Osteoporosis [Unknown]
  - Hypertension [Unknown]
  - Nephrolithiasis [Unknown]
  - Dizziness [Recovered/Resolved]
  - Type 2 diabetes mellitus [Unknown]
  - Osteoarthritis [Unknown]
  - Vitamin D deficiency [Unknown]

NARRATIVE: CASE EVENT DATE: 2008
